FAERS Safety Report 10537670 (Version 1)
Quarter: 2014Q4

REPORT INFORMATION
  Report Type: Spontaneous
  Country: DE (occurrence: None)
  Receive Date: 20141021
  Receipt Date: 20141021
  Transmission Date: 20150529
  Serious: Yes (Other)
  Sender: FDA-Public Use
  Company Number: FK201404282

PATIENT
  Age: 69 Year
  Sex: Female

DRUGS (5)
  1. RITUXIMAB [Suspect]
     Active Substance: RITUXIMAB
     Indication: B-CELL LYMPHOMA
     Dosage: 1 MG, INTRAVENOUS (NOT OTHERWISE SPECIFIED)?
     Route: 042
  2. ACETAZOLAMIDE. [Concomitant]
     Active Substance: ACETAZOLAMIDE
  3. TIMOLOL [Concomitant]
     Active Substance: TIMOLOL
  4. METHOTREXATE [Suspect]
     Active Substance: METHOTREXATE
     Indication: B-CELL LYMPHOMA
     Dosage: 0.4 MG, 2 WK, INTRAVENOUS (NOT OTHERWISE SPECIFIED)?
     Route: 042
  5. BRIMONIDINE [Concomitant]
     Active Substance: BRIMONIDINE\BRIMONIDINE TARTRATE

REACTIONS (2)
  - Retinal degeneration [None]
  - Open angle glaucoma [None]
